FAERS Safety Report 13193834 (Version 2)
Quarter: 2017Q1

REPORT INFORMATION
  Report Type: Report from Study
  Country: CA (occurrence: CA)
  Receive Date: 20170207
  Receipt Date: 20170217
  Transmission Date: 20170428
  Serious: Yes (Hospitalization, Other)
  Sender: FDA-Public Use
  Company Number: CA-AMGEN-CANSL2017018451

PATIENT
  Age: 68 Year
  Sex: Female

DRUGS (10)
  1. MTX [Suspect]
     Active Substance: METHOTREXATE SODIUM
     Indication: RHEUMATOID ARTHRITIS
     Dosage: 0.07 UNK, EVERY THURSDAY
     Route: 065
  2. MELOXICAM. [Concomitant]
     Active Substance: MELOXICAM
     Dosage: 15 MG, EVERY OTHER DAY, UNK
  3. TYLENOL ARTHRITIS PAIN [Concomitant]
     Active Substance: ACETAMINOPHEN
     Indication: ARTHRITIS
     Dosage: 4TABS A DAY
  4. SYNTHROID [Concomitant]
     Active Substance: LEVOTHYROXINE SODIUM
     Dosage: 0.75 MG, QD
  5. ENBREL [Suspect]
     Active Substance: ETANERCEPT
     Indication: RHEUMATOID ARTHRITIS
     Dosage: 50 MG, QWK
     Route: 065
     Dates: start: 20090126
  6. CALCIUM + MAGNESIUM [Concomitant]
     Dosage: UNK
  7. LEUCOVORIN. [Concomitant]
     Active Substance: LEUCOVORIN
     Indication: NAUSEA
     Dosage: 5 MG, EVERY THURSDAY
  8. RABEPRAZOLE [Concomitant]
     Active Substance: RABEPRAZOLE
     Dosage: 20 MG, QD
  9. PREMARIN [Concomitant]
     Active Substance: ESTROGENS, CONJUGATED
     Dosage: UNK UNK, 2 TIMES/WK
  10. AMITRIPTYLINE [Concomitant]
     Active Substance: AMITRIPTYLINE
     Indication: FIBROMYALGIA
     Dosage: 10 MG, QD

REACTIONS (9)
  - Restlessness [Unknown]
  - Infection [Unknown]
  - Rheumatoid arthritis [Unknown]
  - Stress [Unknown]
  - Hypotension [Unknown]
  - White blood cells urine positive [Unknown]
  - Sinusitis [Unknown]
  - Surgery [Unknown]
  - Nausea [Unknown]

NARRATIVE: CASE EVENT DATE: 20170128
